FAERS Safety Report 12330561 (Version 1)
Quarter: 2016Q2

REPORT INFORMATION
  Report Type: Spontaneous
  Country: US (occurrence: None)
  Receive Date: 20160503
  Receipt Date: 20160503
  Transmission Date: 20160815
  Serious: Yes (Hospitalization)
  Sender: FDA-Public Use
  Company Number: None

PATIENT
  Age: 94 Year
  Sex: Male
  Weight: 74.84 kg

DRUGS (8)
  1. AVODART [Concomitant]
     Active Substance: DUTASTERIDE
  2. DIGOXIN. [Concomitant]
     Active Substance: DIGOXIN
  3. ATENOLOL ER [Concomitant]
  4. CA CARBONATE 600MG/VIT D 400IU [Concomitant]
  5. INTERVENOUS PHENYTOIN SODIUM, 50MG/ML [Suspect]
     Active Substance: PHENYTOIN SODIUM
     Indication: CONVULSION PROPHYLAXIS
     Dosage: 1500 MG IVPB INFUSION ONCE INTRAVENOUS DRIP
     Route: 041
     Dates: start: 20160501, end: 20160501
  6. FLOMAX [Concomitant]
     Active Substance: TAMSULOSIN HYDROCHLORIDE
  7. AGGRENOX [Concomitant]
     Active Substance: ASPIRIN\DIPYRIDAMOLE
  8. MVI [Concomitant]
     Active Substance: VITAMINS

REACTIONS (4)
  - Dystonia [None]
  - Somnolence [None]
  - Infusion related reaction [None]
  - Dysarthria [None]

NARRATIVE: CASE EVENT DATE: 20160501
